FAERS Safety Report 7426984-5 (Version None)
Quarter: 2011Q2

REPORT INFORMATION
  Report Type: 
  Country: None (occurrence: None)
  Receive Date: 20110420
  Receipt Date: 20110414
  Transmission Date: 20111010
  Serious: Yes (Other)
  Sender: FDA-Public Use
  Company Number: US-ABBOTT-11P-163-0715503-00

PATIENT
  Sex: Male
  Weight: 77.18 kg

DRUGS (7)
  1. CYMBALTA [Concomitant]
     Indication: DEPRESSION
  2. ACIPHEX [Concomitant]
     Indication: GASTROOESOPHAGEAL REFLUX DISEASE
  3. ALLOPURINOL [Concomitant]
     Indication: GOUT
  4. HUMIRA [Suspect]
     Indication: CROHN'S DISEASE
     Dosage: LOADING DOSE
     Route: 058
     Dates: start: 20110325, end: 20110325
  5. HUMIRA [Suspect]
     Route: 058
  6. PENTASA [Concomitant]
     Indication: CROHN'S DISEASE
  7. IRON [Concomitant]
     Indication: ANAEMIA
     Dosage: AS NEEDED
     Route: 042

REACTIONS (7)
  - INCORRECT DOSE ADMINISTERED [None]
  - CROHN'S DISEASE [None]
  - FOREIGN BODY [None]
  - DRUG INEFFECTIVE [None]
  - DEVICE MALFUNCTION [None]
  - SMALL INTESTINAL STENOSIS [None]
  - WEIGHT DECREASED [None]
